FAERS Safety Report 18097830 (Version 1)
Quarter: 2020Q3

REPORT INFORMATION
  Report Type: Spontaneous
  Country: US (occurrence: US)
  Receive Date: 20200731
  Receipt Date: 20200731
  Transmission Date: 20201103
  Serious: No
  Sender: FDA-Public Use
  Company Number: US-BAUSCH-BL-2020-021054

PATIENT
  Age: 21 Year
  Sex: Female

DRUGS (6)
  1. MINOCYCLINE [Concomitant]
     Active Substance: MINOCYCLINE HYDROCHLORIDE
     Indication: ACNE
     Dosage: 1 UNSPECIFIED UNIT
     Route: 048
     Dates: end: 202007
  2. TRETINOIN CREAM 0.05% [Suspect]
     Active Substance: TRETINOIN
     Indication: ACNE
     Dosage: AS DIRECTED
     Route: 061
     Dates: start: 20200602
  3. NU?DERM BLENDER [Suspect]
     Active Substance: HYDROQUINONE
     Indication: SKIN HYPERPIGMENTATION
  4. NU?DERM BLENDER [Suspect]
     Active Substance: HYDROQUINONE
     Indication: ACNE
     Dosage: AS DIRECTED
     Route: 061
     Dates: start: 20200602
  5. MINOCYCLINE [Concomitant]
     Active Substance: MINOCYCLINE HYDROCHLORIDE
     Indication: SKIN HYPERPIGMENTATION
     Dosage: RESTARTED
     Route: 048
     Dates: start: 20200720
  6. TRETINOIN CREAM 0.05% [Suspect]
     Active Substance: TRETINOIN
     Indication: SKIN HYPERPIGMENTATION

REACTIONS (2)
  - Acne [Not Recovered/Not Resolved]
  - Expired product administered [Unknown]

NARRATIVE: CASE EVENT DATE: 20200602
